FAERS Safety Report 4903227-5 (Version None)
Quarter: 2006Q1

REPORT INFORMATION
  Report Type: 
  Country: None (occurrence: None)
  Receive Date: 20060113
  Receipt Date: 20030811
  Transmission Date: 20060701
  Serious: Yes (Other)
  Sender: FDA-Public Use
  Company Number: HQWYE085613AUG03

PATIENT
  Age: 57 Year
  Sex: Female
  Weight: 70.82 kg

DRUGS (5)
  1. PREMPRO [Suspect]
     Dosage: 0.625MG/ 5MG, ORAL
     Route: 048
     Dates: start: 19970801
  2. PREMARIN [Suspect]
     Dosage: 0.625 MG, ORAL
     Route: 048
     Dates: start: 19930801
  3. PROVERA [Suspect]
     Dosage: 5MG, ORAL
     Route: 048
     Dates: start: 19930801, end: 19970701
  4. PREVACID [Concomitant]
  5. CLARITIN [Concomitant]

REACTIONS (1)
  - BREAST CANCER [None]
